FAERS Safety Report 6377569-3 (Version None)
Quarter: 2009Q3

REPORT INFORMATION
  Report Type: 
  Country: None (occurrence: None)
  Receive Date: 20090925
  Receipt Date: 20090916
  Transmission Date: 20100115
  Serious: Yes (Hospitalization, Other)
  Sender: FDA-Public Use
  Company Number: US-ROCHE-575328

PATIENT
  Sex: Male
  Weight: 100.7 kg

DRUGS (8)
  1. CAPECITABINE [Suspect]
     Indication: COLON CANCER
     Route: 048
     Dates: start: 20080325
  2. ASPIRIN [Concomitant]
  3. ATENOLOL [Concomitant]
  4. LIPITOR [Concomitant]
  5. LISINOPRIL [Concomitant]
  6. NORVASC [Concomitant]
  7. PLAVIX [Concomitant]
  8. AMIODARONE HCL [Concomitant]

REACTIONS (4)
  - CONSTIPATION [None]
  - MALIGNANT NEOPLASM PROGRESSION [None]
  - ONYCHOMADESIS [None]
  - PARAESTHESIA [None]
